FAERS Safety Report 5002173-9 (Version None)
Quarter: 2006Q2

REPORT INFORMATION
  Report Type: 
  Country: None (occurrence: None)
  Receive Date: 20060510
  Receipt Date: 20060412
  Transmission Date: 20061013
  Serious: Yes (Hospitalization, Other)
  Sender: FDA-Public Use
  Company Number: A-US2002-00315

PATIENT
  Age: 54 Year
  Sex: Female
  Weight: 82.1 kg

DRUGS (6)
  1. TRACLEER [Suspect]
     Indication: PULMONARY HYPERTENSION
     Dosage: 62.5 MG, BID, ORAL
     Route: 048
     Dates: start: 20020601, end: 20020608
  2. LASIX [Concomitant]
  3. ALDACTONE [Concomitant]
  4. COUMADIN [Concomitant]
  5. DIGITOXIN TAB [Concomitant]
  6. METHADONE HCL [Concomitant]

REACTIONS (7)
  - ALANINE AMINOTRANSFERASE DECREASED [None]
  - ASPARTATE AMINOTRANSFERASE INCREASED [None]
  - BACTERIAL INFECTION [None]
  - BLOOD BILIRUBIN INCREASED [None]
  - PYREXIA [None]
  - SEPSIS [None]
  - TREMOR [None]
